FAERS Safety Report 9923962 (Version 2)
Quarter: 2014Q1

REPORT INFORMATION
  Report Type: Spontaneous
  Country: US (occurrence: US)
  Receive Date: 20140225
  Receipt Date: 20140225
  Transmission Date: 20141002
  Serious: No
  Sender: FDA-Public Use
  Company Number: US-GILEAD-2012-0055473

PATIENT
  Sex: Female

DRUGS (2)
  1. VIREAD [Suspect]
     Indication: HEPATITIS B
     Dosage: 300 MG, QD
     Route: 048
     Dates: start: 201205
  2. BARACLUDE [Concomitant]
     Indication: HEPATITIS B
     Dosage: UNK
     Dates: start: 20110214, end: 20120516

REACTIONS (1)
  - Pregnancy [Recovered/Resolved]
